FAERS Safety Report 10543764 (Version 2)
Quarter: 2014Q4

REPORT INFORMATION
  Report Type: Spontaneous
  Country: IL (occurrence: IL)
  Receive Date: 20141027
  Receipt Date: 20141118
  Transmission Date: 20150529
  Serious: Yes (Hospitalization, Other)
  Sender: FDA-Public Use
  Company Number: IL-SHIRE-IL201407131

PATIENT
  Age: 54 Year
  Sex: Male

DRUGS (1)
  1. VPRIV [Suspect]
     Active Substance: VELAGLUCERASE ALFA
     Indication: GAUCHER^S DISEASE
     Dosage: UNK UNK, UNKNOWN
     Route: 041
     Dates: start: 2014

REACTIONS (1)
  - Endocarditis bacterial [Recovering/Resolving]

NARRATIVE: CASE EVENT DATE: 2014
